FAERS Safety Report 18240372 (Version 1)
Quarter: 2020Q3

REPORT INFORMATION
  Report Type: Spontaneous
  Country: IE (occurrence: IE)
  Receive Date: 20200908
  Receipt Date: 20200908
  Transmission Date: 20201103
  Serious: Yes (Other)
  Sender: FDA-Public Use
  Company Number: IE-JNJFOC-20200848204

PATIENT
  Sex: Female
  Weight: 63.9 kg

DRUGS (5)
  1. PARACETAMOL [Suspect]
     Active Substance: ACETAMINOPHEN
     Indication: ANALGESIC THERAPY
     Dosage: GESTATION PERIOD: 1 (WEEKS)?1 GRAM, TID
     Route: 048
  2. ORENCIA [Suspect]
     Active Substance: ABATACEPT
     Indication: PRODUCT USED FOR UNKNOWN INDICATION
     Dosage: UNK?GESTATION PERIOD: 1 (WEEKS)
     Route: 065
  3. LEVOTHYROXINE SODIUM. [Suspect]
     Active Substance: LEVOTHYROXINE SODIUM
     Dosage: 100 MICROGRAM, QD?GESTATION PERIOD: 1 (WEEKS)?ADDITIONAL INFO: 50 MCG MONDAY TO THURSDAY100 MCG FRID
     Route: 048
  4. GALFER [Suspect]
     Active Substance: IRON
     Indication: BLOOD IRON DECREASED
     Dosage: 1 TAB, QD?GESTATION PERIOD: 1 (WEEKS)
     Route: 048
  5. LEVOTHYROXINE SODIUM. [Suspect]
     Active Substance: LEVOTHYROXINE SODIUM
     Indication: HYPOTHYROIDISM
     Dosage: 50 MICROGRAM, QD?ADDITIONAL INFO: 50 MCG MONDAY TO THURSDAY100 MCG FRIDAY TO SUNDAY.?GESTATION PERIO
     Route: 048

REACTIONS (3)
  - Normal newborn [Unknown]
  - Rheumatoid arthritis [Unknown]
  - Maternal exposure during pregnancy [Recovered/Resolved]

NARRATIVE: CASE EVENT DATE: 202005
